FAERS Safety Report 5904108-0 (Version None)
Quarter: 2008Q3

REPORT INFORMATION
  Report Type: 
  Country: None (occurrence: None)
  Receive Date: 20080919
  Receipt Date: 20080709
  Transmission Date: 20090109
  Serious: Yes (Other)
  Sender: FDA-Public Use
  Company Number: US-WYE-H05035508

PATIENT
  Age: 38 Year
  Sex: Female

DRUGS (1)
  1. PRISTIQ [Suspect]
     Indication: DEPRESSION
     Dosage: 50 MH 1X PER 1 DAY, ORAL
     Route: 048
     Dates: start: 20080619, end: 20080703

REACTIONS (1)
  - GENERALISED OEDEMA [None]
